FAERS Safety Report 7396949 (Version 2)
Quarter: 2013Q2

REPORT INFORMATION
  Report Type: Spontaneous
  Country: US (occurrence: US)
  Receive Date: 20100524
  Receipt Date: 20130620
  Transmission Date: 20140414
  Serious: No
  Sender: FDA-Public Use
  Company Number: US-BIOGENIDEC-2010BI016667

PATIENT
  Age: 63 Year
  Sex: Female

DRUGS (1)
  1. TYSABRI [Suspect]
     Indication: MULTIPLE SCLEROSIS
     Route: 042
     Dates: start: 20100426

REACTIONS (7)
  - Memory impairment [Not Recovered/Not Resolved]
  - Speech disorder [Recovered/Resolved]
  - Aphasia [Unknown]
  - Stress [Not Recovered/Not Resolved]
  - Cognitive disorder [Unknown]
  - Headache [Recovered/Resolved]
  - Pruritus generalised [Not Recovered/Not Resolved]
